FAERS Safety Report 6193259-4 (Version None)
Quarter: 2009Q2

REPORT INFORMATION
  Report Type: 
  Country: None (occurrence: None)
  Receive Date: 20090518
  Receipt Date: 20090508
  Transmission Date: 20091009
  Serious: Yes (Hospitalization)
  Sender: FDA-Public Use
  Company Number: A0784641A

PATIENT
  Age: 55 Year
  Sex: Male
  Weight: 92.3 kg

DRUGS (7)
  1. AVANDIA [Suspect]
     Dosage: 8MG PER DAY
     Dates: start: 20030201, end: 20040101
  2. AVANDAMET [Suspect]
     Dates: start: 20061001, end: 20070501
  3. JANUMET [Concomitant]
     Dates: start: 20060601, end: 20090130
  4. ATENOLOL [Concomitant]
     Dates: start: 20020401, end: 20080801
  5. ZOCOR [Concomitant]
     Dates: start: 20070301
  6. TRICOR [Concomitant]
  7. LOTREL [Concomitant]

REACTIONS (10)
  - ASTHENIA [None]
  - BRADYCARDIA [None]
  - CARDIAC DISORDER [None]
  - CARDIAC FAILURE CONGESTIVE [None]
  - CARDIOMYOPATHY [None]
  - CHEST PAIN [None]
  - CORONARY ARTERY DISEASE [None]
  - FATIGUE [None]
  - MITRAL VALVE DISEASE [None]
  - MYOCARDIAL INFARCTION [None]
